FAERS Safety Report 8002833-1 (Version None)
Quarter: 2011Q4

REPORT INFORMATION
  Report Type: 
  Country: None (occurrence: None)
  Receive Date: 20111222
  Receipt Date: 20101119
  Transmission Date: 20120403
  Serious: No
  Sender: FDA-Public Use
  Company Number: US-GLAXOSMITHKLINE-A0894264A

PATIENT
  Age: 59 Year
  Sex: Male

DRUGS (7)
  1. ZETIA [Concomitant]
  2. COZAAR [Concomitant]
  3. JALYN [Suspect]
     Indication: PROSTATOMEGALY
     Route: 048
     Dates: start: 20100901, end: 20100901
  4. ASPIRIN [Concomitant]
  5. ALCOHOL [Concomitant]
  6. AVODART [Suspect]
     Indication: PROSTATOMEGALY
     Dosage: .5MG PER DAY
     Route: 048
     Dates: start: 20100901, end: 20101001
  7. TESTIM [Concomitant]

REACTIONS (4)
  - DISTURBANCE IN ATTENTION [None]
  - FATIGUE [None]
  - COGNITIVE DISORDER [None]
  - PAIN IN JAW [None]
